FAERS Safety Report 7001662-5 (Version None)
Quarter: 2010Q3

REPORT INFORMATION
  Report Type: 
  Country: None (occurrence: None)
  Receive Date: 20100920
  Receipt Date: 20100915
  Transmission Date: 20110219
  Serious: Yes (Death, Hospitalization)
  Sender: FDA-Public Use
  Company Number: ES-PFIZER INC-2010114492

PATIENT
  Age: 66 Year
  Sex: Female

DRUGS (9)
  1. SUNITINIB MALATE [Suspect]
     Indication: GLIOBLASTOMA
     Dosage: 37.5 MG, 1X/DAY
     Route: 048
     Dates: start: 20100719, end: 20100902
  2. FLUOXETINE [Concomitant]
     Dosage: 40 MG
  3. HIDROSALURETIL [Concomitant]
     Dosage: 25 MG
  4. FORTECORTIN [Concomitant]
     Dosage: 2 MG
  5. MICARDIS [Concomitant]
     Dosage: 80 MG
  6. OMEPRAZOLE [Concomitant]
     Dosage: 20 MG
  7. UROTROL [Concomitant]
     Dosage: 2 MG
  8. ACETAMINOPHEN [Concomitant]
     Dosage: 3 G
  9. DIAZEPAM [Concomitant]
     Dosage: 5 MG

REACTIONS (1)
  - ENCEPHALOPATHY [None]
